FAERS Safety Report 5177239-3 (Version None)
Quarter: 2006Q4

REPORT INFORMATION
  Report Type: 
  Country: None (occurrence: None)
  Receive Date: 20061218
  Receipt Date: 20061213
  Transmission Date: 20070319
  Serious: Yes (Hospitalization)
  Sender: FDA-Public Use
  Company Number: US-GLAXOSMITHKLINE-A0631426A

PATIENT
  Age: 84 Year
  Sex: Female

DRUGS (7)
  1. CITRUCEL REGULAR SUSPENSION [Suspect]
     Indication: CONSTIPATION
     Route: 048
     Dates: start: 20060901
  2. LEVAQUIN [Concomitant]
  3. ACTONEL [Concomitant]
  4. METOPROLOL SUCCINATE [Concomitant]
  5. IPRATROPIUM BROMIDE [Concomitant]
  6. TYLENOL [Concomitant]
  7. ALEVE [Concomitant]

REACTIONS (14)
  - ABDOMINAL DISTENSION [None]
  - ABDOMINAL PAIN UPPER [None]
  - ANOREXIA [None]
  - CONSTIPATION [None]
  - DEHYDRATION [None]
  - DIVERTICULUM [None]
  - FEELING ABNORMAL [None]
  - FLATULENCE [None]
  - INFECTION [None]
  - INFLAMMATION [None]
  - MALAISE [None]
  - MALNUTRITION [None]
  - NAUSEA [None]
  - WEIGHT DECREASED [None]
